FAERS Safety Report 11450288 (Version 1)
Quarter: 2015Q3

REPORT INFORMATION
  Report Type: Spontaneous
  Country: US (occurrence: US)
  Receive Date: 20150903
  Receipt Date: 20150903
  Transmission Date: 20151125
  Serious: Yes (Other)
  Sender: FDA-Public Use
  Company Number: US-ASTRAZENECA-2015SE84317

PATIENT

DRUGS (2)
  1. OLAPARIB [Suspect]
     Active Substance: OLAPARIB
     Route: 048
  2. OLAPARIB [Suspect]
     Active Substance: OLAPARIB
     Route: 048

REACTIONS (1)
  - Red blood cell count decreased [Unknown]
